FAERS Safety Report 6570016-8 (Version None)
Quarter: 2010Q1

REPORT INFORMATION
  Report Type: 
  Country: None (occurrence: None)
  Receive Date: 20100204
  Receipt Date: 20100114
  Transmission Date: 20100710
  Serious: Yes (Death, Hospitalization)
  Sender: FDA-Public Use
  Company Number: BR-BAYER-201010456LA

PATIENT
  Age: 95 Year
  Sex: Female
  Weight: 47 kg

DRUGS (5)
  1. NIMOTOP [Suspect]
     Indication: MEMORY IMPAIRMENT
     Dosage: TOTAL DAILY DOSE: 60 MG  UNIT DOSE: 30 MG
     Route: 048
     Dates: start: 20060101, end: 20091201
  2. ANCORON [Concomitant]
     Indication: DRUG USE FOR UNKNOWN INDICATION
     Dosage: 1 TABLET AT MORNING
     Route: 048
     Dates: start: 20050101, end: 20091201
  3. SUSTRATE [Concomitant]
     Indication: DRUG USE FOR UNKNOWN INDICATION
     Route: 048
     Dates: start: 20050101, end: 20091201
  4. MAREVAN [Concomitant]
     Indication: DRUG USE FOR UNKNOWN INDICATION
     Route: 048
     Dates: start: 20050101, end: 20091201
  5. DAFLON [Concomitant]
     Indication: DRUG USE FOR UNKNOWN INDICATION
     Route: 048
     Dates: start: 20050101, end: 20091201

REACTIONS (1)
  - RESPIRATORY FAILURE [None]
